FAERS Safety Report 7438062-X (Version None)
Quarter: 2011Q2

REPORT INFORMATION
  Report Type: 
  Country: None (occurrence: None)
  Receive Date: 20110426
  Receipt Date: 20110422
  Transmission Date: 20111010
  Serious: Yes (Life-Threatening, Hospitalization, Other)
  Sender: FDA-Public Use
  Company Number: PHHY2010JP56543

PATIENT
  Sex: Female
  Weight: 35 kg

DRUGS (38)
  1. HYDROCORTISONE SODIUM SUCCINATE [Concomitant]
     Dosage: 100 MG
     Route: 042
  2. SULFAMETHOXAZOLE TRIMETHOPRIM [Concomitant]
     Dosage: 1 G/DAY
  3. AMPHOTERICIN B [Concomitant]
     Dosage: 1.2 G/DAY
  4. PROPOFOL [Concomitant]
     Dosage: 40 MG
  5. VALGANCICLOVIR [Concomitant]
     Dosage: 450 MG, UNK
     Route: 048
     Dates: start: 20090127, end: 20090224
  6. CYCLOSPORINE [Suspect]
     Dosage: 80 MG
     Dates: start: 20081202, end: 20090105
  7. PREDNISOLONE [Suspect]
     Dosage: 7.5 MG, UNK
     Route: 048
     Dates: start: 20090206
  8. PREDNISOLONE [Suspect]
     Dosage: 5 MG, UNK
     Route: 048
     Dates: start: 20090928
  9. ADRENOCORTICOTROPHIC HORMONE [Suspect]
     Indication: LUNG TRANSPLANT
     Dosage: 1500 MG, UNK
     Route: 042
     Dates: start: 20080930
  10. PETHIDINE HYDROCHLORIDE [Concomitant]
     Dosage: 30 MG
     Route: 030
  11. SEVOFLURANE [Concomitant]
     Dosage: 03 PERCENT
  12. CYCLOSPORINE [Suspect]
     Indication: LUNG TRANSPLANT
     Dosage: 80 MG, BID
     Dates: start: 20081030, end: 20081201
  13. CYCLOSPORINE [Suspect]
     Dosage: UNK
     Dates: start: 20090325
  14. NEORAL [Suspect]
     Indication: LUNG TRANSPLANT
     Dosage: UNK
     Route: 048
     Dates: start: 20081013, end: 20081029
  15. CELLCEPT [Suspect]
     Dosage: 500 MG, UNK
     Route: 048
     Dates: start: 20081119, end: 20090323
  16. PREDNISOLONE [Suspect]
     Indication: LUNG TRANSPLANT
     Dosage: 15 MG, UNK
     Route: 048
     Dates: start: 20081010
  17. CELLCEPT [Suspect]
     Dosage: 500 MG, UNK
     Route: 048
     Dates: start: 20081002, end: 20081009
  18. CELLCEPT [Suspect]
     Dosage: 750 MG, UNK
     Route: 048
     Dates: start: 20081010, end: 20081118
  19. LANSOPRAZOLE [Concomitant]
     Dosage: 60 MG/DAY
  20. MIDAZOLAM [Concomitant]
     Dosage: 2 MG
  21. CYCLOSPORINE [Suspect]
     Dosage: 50 MG
     Dates: start: 20090106, end: 20100222
  22. CELLCEPT [Suspect]
     Dosage: 750 MG, UNK
     Route: 048
     Dates: start: 20090324
  23. PREDNISOLONE [Suspect]
     Dosage: 10 MG, UNK
     Route: 048
     Dates: start: 20090123
  24. REMIFENTANIL [Concomitant]
     Dosage: 0.25 UG/KG/MIN
  25. CELLCEPT [Suspect]
     Indication: LUNG TRANSPLANT
     Dosage: 250 MG, UNK
     Route: 048
     Dates: start: 20081001, end: 20081001
  26. ATROPINE SULFATE [Concomitant]
     Dosage: 0.3 MG
  27. ROCURONIUM BROMIDE [Concomitant]
     Dosage: 20 MG
  28. CEFAZOLIN SODIUM [Concomitant]
     Dosage: 600 MG
     Route: 042
  29. SANDIMMUNE [Suspect]
     Indication: LUNG TRANSPLANT
     Dosage: UNK
     Route: 041
     Dates: start: 20081001, end: 20081012
  30. PREDNISOLONE [Suspect]
     Dosage: 6.75 MG, UNK
     Route: 048
     Dates: start: 20090325
  31. METILDIGOXIN [Concomitant]
     Dosage: 0.1 MG/DAY
  32. ACYCLOVIR [Concomitant]
     Dosage: 200 MG/DAY
  33. METHYLPREDNISOLONE [Suspect]
     Indication: LUNG TRANSPLANT
     Dosage: 100 MG, UNK
     Route: 042
     Dates: start: 20081001, end: 20081009
  34. METHYLPREDNISOLONE [Suspect]
     Dosage: 50 MG, UNK
     Route: 042
     Dates: start: 20081004, end: 20081009
  35. PREDNISOLONE [Suspect]
     Dosage: 12.5 MG, UNK
     Route: 048
     Dates: start: 20081012
  36. PREDNISOLONE [Suspect]
     Dosage: 5 MG, UNK
     Route: 048
     Dates: start: 20090328
  37. PREDNISOLONE [Suspect]
     Dosage: 3.75 MG, UNK
     Route: 048
     Dates: start: 20090730
  38. ETIZOLAM [Concomitant]
     Dosage: 1 MG/DAY

REACTIONS (19)
  - NAUSEA [None]
  - METABOLIC ACIDOSIS [None]
  - URINE KETONE BODY PRESENT [None]
  - VITAL CAPACITY DECREASED [None]
  - HYPOGLYCAEMIA [None]
  - TACHYCARDIA [None]
  - BLOOD PRESSURE DECREASED [None]
  - LYMPHOMA [None]
  - TONGUE NEOPLASM MALIGNANT STAGE UNSPECIFIED [None]
  - WHITE BLOOD CELL COUNT INCREASED [None]
  - DEHYDRATION [None]
  - ENTEROCOLITIS [None]
  - BLOOD CREATININE INCREASED [None]
  - DIARRHOEA [None]
  - MALNUTRITION [None]
  - RESPIRATORY FAILURE [None]
  - HYPOPHAGIA [None]
  - GASTROENTERITIS [None]
  - DYSPNOEA [None]
